FAERS Safety Report 11762688 (Version 3)
Quarter: 2016Q2

REPORT INFORMATION
  Report Type: Spontaneous
  Country: US (occurrence: US)
  Receive Date: 20151120
  Receipt Date: 20160527
  Transmission Date: 20160815
  Serious: Yes (Other)
  Sender: FDA-Public Use
  Company Number: US-ASTRAZENECA-2015SF12932

PATIENT
  Age: 69 Year
  Sex: Female
  Weight: 48 kg

DRUGS (20)
  1. SKELAXIN [Concomitant]
     Active Substance: METAXALONE
     Route: 048
  2. PROCTOFOAM HC [Concomitant]
     Active Substance: HYDROCORTISONE ACETATE\PRAMOXINE HYDROCHLORIDE
     Dosage: UNK, AS NEEDED (1 %-1 %)
  3. IPRATROPIUM BROMIDE. [Concomitant]
     Active Substance: IPRATROPIUM BROMIDE
  4. NEXIUM 24HR [Suspect]
     Active Substance: ESOMEPRAZOLE MAGNESIUM
     Indication: GASTRIC ULCER
     Route: 048
     Dates: start: 2014
  5. MORPHINE [Concomitant]
     Active Substance: MORPHINE
     Indication: HEADACHE
     Dates: start: 2008
  6. MACROBID [Concomitant]
     Active Substance: NITROFURANTOIN\NITROFURANTOIN MONOHYDRATE
     Route: 048
  7. ZOLOFT [Concomitant]
     Active Substance: SERTRALINE HYDROCHLORIDE
     Route: 048
  8. TRIAMCINOLONE ACETONIDE. [Concomitant]
     Active Substance: TRIAMCINOLONE ACETONIDE
     Route: 061
  9. NEXIUM 24HR [Suspect]
     Active Substance: ESOMEPRAZOLE MAGNESIUM
     Indication: GASTRIC ULCER
     Dosage: AGAIN TAKES TWO IN THE EVENING
     Route: 048
     Dates: start: 2014
  10. REMERON [Concomitant]
     Active Substance: MIRTAZAPINE
     Dosage: 45 MG, DAILY
     Route: 048
  11. PREDNISONE. [Concomitant]
     Active Substance: PREDNISONE
     Dosage: 10 MG, DAILY
     Route: 048
  12. NITROFURANTOIN MONOHYDRATE/MACROCRYSTALS [Concomitant]
     Active Substance: NITROFURANTOIN\NITROFURANTOIN MONOHYDRATE
     Dosage: 100 MG, UNK (TAKE 1 CAPSULE BY ORAL ROUTE EVERY 12 HOURS WITH FOOD)
     Route: 048
  13. LORAZEPAM. [Concomitant]
     Active Substance: LORAZEPAM
     Route: 048
  14. GENTEAL MILD [Concomitant]
     Active Substance: HYPROMELLOSE 2910 (4000 MPA.S)
     Dosage: UNK (GEL 0.25 %-0.3 % EYE DROPS), DAILY
  15. SPIRIVA [Concomitant]
     Active Substance: TIOTROPIUM BROMIDE MONOHYDRATE
     Dosage: 18 ???G (INHALE 1 CAPSULE (18MCG) BY INHALATION ROUTE EVERY DAY), DAILY
  16. IRON [Concomitant]
     Active Substance: IRON
     Dosage: UNK
  17. NORVASC [Concomitant]
     Active Substance: AMLODIPINE BESYLATE
     Dosage: 5 MG, DAILY
     Route: 048
  18. LIDODERM [Concomitant]
     Active Substance: LIDOCAINE
     Dosage: 2 DF, DAILY
  19. LEVOTHYROXINE. [Concomitant]
     Active Substance: LEVOTHYROXINE
     Dosage: 100 ???G, DAILY
     Route: 048
  20. URSO [Concomitant]
     Active Substance: URSODIOL
     Route: 048

REACTIONS (11)
  - Weight decreased [Not Recovered/Not Resolved]
  - Nausea [Not Recovered/Not Resolved]
  - Proteus test positive [Unknown]
  - Product colour issue [Unknown]
  - Gastric disorder [Not Recovered/Not Resolved]
  - Pneumonia klebsiella [Unknown]
  - Staphylococcal infection [Unknown]
  - Vomiting [Recovering/Resolving]
  - Product use issue [Not Recovered/Not Resolved]
  - Poor quality drug administered [Unknown]
  - Product physical issue [Unknown]

NARRATIVE: CASE EVENT DATE: 2014
